FAERS Safety Report 6442726-4 (Version None)
Quarter: 2009Q4

REPORT INFORMATION
  Report Type: 
  Country: None (occurrence: None)
  Receive Date: 20091117
  Receipt Date: 20091014
  Transmission Date: 20100525
  Serious: Yes (Hospitalization)
  Sender: FDA-Public Use
  Company Number: PHHY2009KR44695

PATIENT
  Sex: Female
  Weight: 71.65 kg

DRUGS (1)
  1. ICL670A ICL+ [Suspect]
     Indication: APLASTIC ANAEMIA
     Dosage: UNK

REACTIONS (8)
  - ASTHENIA [None]
  - AZOTAEMIA [None]
  - BLOOD CREATININE INCREASED [None]
  - BLOOD UREA INCREASED [None]
  - MICTURITION URGENCY [None]
  - POLLAKIURIA [None]
  - PYREXIA [None]
  - URINARY HESITATION [None]
